FAERS Safety Report 8008515-4 (Version None)
Quarter: 2011Q4

REPORT INFORMATION
  Report Type: 
  Country: None (occurrence: None)
  Receive Date: 20111221
  Receipt Date: 20111209
  Transmission Date: 20120403
  Serious: Yes (Death)
  Sender: FDA-Public Use
  Company Number: 1000026352

PATIENT
  Age: 73 Year
  Sex: Female
  Weight: 41.27 kg

DRUGS (3)
  1. OLANZAPINE [Concomitant]
  2. MIDAZOLAM HCL [Concomitant]
  3. CITALOPRAM HYDROBROMIDE [Suspect]
     Dosage: 40 MG (40 MG, 1 IN 1 D), ORAL
     Route: 048

REACTIONS (2)
  - CARDIAC ARREST [None]
  - HALLUCINATION [None]
